FAERS Safety Report 7688282-4 (Version None)
Quarter: 2011Q3

REPORT INFORMATION
  Report Type: 
  Country: None (occurrence: None)
  Receive Date: 20110817
  Receipt Date: 20110607
  Transmission Date: 20111222
  Serious: No
  Sender: FDA-Public Use
  Company Number: US-KINGPHARMUSA00001-K201100705

PATIENT
  Age: 63 Year
  Sex: Female
  Weight: 87.528 kg

DRUGS (3)
  1. CYTOMEL [Suspect]
     Indication: HYPOTHYROIDISM
     Dosage: 5 MCG, QD
     Route: 048
     Dates: start: 20110301
  2. SYNTHROID [Suspect]
     Indication: HYPOTHYROIDISM
     Dosage: 50 MCG, QD
     Route: 048
     Dates: end: 20110101
  3. SYNTHROID [Suspect]
     Dosage: 75 MCG, QD
     Route: 048
     Dates: start: 20110101

REACTIONS (2)
  - ALOPECIA [None]
  - DRUG INEFFECTIVE [None]
